FAERS Safety Report 15473502 (Version 1)
Quarter: 2018Q4

REPORT INFORMATION
  Report Type: Report from Study
  Country: US (occurrence: US)
  Receive Date: 20181008
  Receipt Date: 20181008
  Transmission Date: 20190205
  Serious: Yes (Other)
  Sender: FDA-Public Use
  Company Number: US-TESARO, INC.-2018-TSO0886-US

PATIENT
  Age: 81 Year
  Sex: Female
  Weight: 69 kg

DRUGS (2)
  1. ZEJULA [Suspect]
     Active Substance: NIRAPARIB
     Dosage: 100 MG, QD, IN PM
     Route: 048
     Dates: start: 20180726
  2. ZEJULA [Suspect]
     Active Substance: NIRAPARIB
     Indication: OVARIAN CANCER
     Dosage: 200MG
     Dates: start: 20180523, end: 20180614

REACTIONS (6)
  - Platelet count decreased [Unknown]
  - Abdominal pain [Unknown]
  - Haemoglobin decreased [Unknown]
  - Malaise [Unknown]
  - Hydrothorax [Unknown]
  - Underdose [Unknown]

NARRATIVE: CASE EVENT DATE: 2018
